FAERS Safety Report 16688887 (Version 1)
Quarter: 2019Q4

REPORT INFORMATION
  Report Type: Spontaneous
  Country: US (occurrence: US)
  Receive Date: 20190809
  Receipt Date: 20190809
  Transmission Date: 20200122
  Serious: Yes (Hospitalization)
  Sender: FDA-Public Use
  Company Number: None

PATIENT
  Age: 56 Year
  Sex: Female
  Weight: 126 kg

DRUGS (6)
  1. OLANZAPINE TABLETS, USP 5 MG [Suspect]
     Active Substance: OLANZAPINE
     Indication: MENTAL DISORDER
     Dosage: ?          QUANTITY:1 TABLET(S);?          THERAPY ONGOING: Y
     Route: 048
     Dates: start: 20180228, end: 20190626
  2. CANE [Concomitant]
  3. OLANZAPINE. [Concomitant]
     Active Substance: OLANZAPINE
  4. IBRUPROFEN [Concomitant]
     Active Substance: IBUPROFEN
  5. VITAMIN B-COMPLES [Concomitant]
  6. IRON [Concomitant]
     Active Substance: IRON

REACTIONS (26)
  - Rash erythematous [None]
  - Tremor [None]
  - Product dose omission [None]
  - Dizziness [None]
  - Gait disturbance [None]
  - Arthralgia [None]
  - Hypersensitivity [None]
  - Anger [None]
  - Malnutrition [None]
  - Dyspnoea [None]
  - Hypophagia [None]
  - Cyanosis [None]
  - Sensory disturbance [None]
  - Nervous system disorder [None]
  - Tongue biting [None]
  - Fine motor skill dysfunction [None]
  - Rash [None]
  - Lip disorder [None]
  - Balance disorder [None]
  - Tinnitus [None]
  - Nausea [None]
  - Ligament pain [None]
  - Coordination abnormal [None]
  - Emotional distress [None]
  - Unevaluable event [None]
  - Genital pain [None]

NARRATIVE: CASE EVENT DATE: 20190605
